FAERS Safety Report 24353183 (Version 1)
Quarter: 2024Q3

REPORT INFORMATION
  Report Type: Report from Study
  Country: US (occurrence: US)
  Receive Date: 20240923
  Receipt Date: 20240923
  Transmission Date: 20241016
  Serious: Yes (Other)
  Sender: NOVARTIS
  Company Number: US-002147023-NVSC2024US089830

PATIENT
  Sex: Female

DRUGS (1)
  1. KESIMPTA [Suspect]
     Active Substance: OFATUMUMAB
     Indication: Product used for unknown indication
     Dosage: UNK
     Route: 065

REACTIONS (11)
  - Multiple sclerosis [Unknown]
  - Gait disturbance [Unknown]
  - Fatigue [Unknown]
  - Vertigo [Unknown]
  - Headache [Recovering/Resolving]
  - Peroneal nerve palsy [Recovering/Resolving]
  - Brain fog [Recovering/Resolving]
  - Pre-existing condition improved [Unknown]
  - Hypovitaminosis [Unknown]
  - Pain [Unknown]
  - Therapeutic product effect decreased [Unknown]
